FAERS Safety Report 20494794 (Version 2)
Quarter: 2022Q1

REPORT INFORMATION
  Report Type: Other
  Country: JP (occurrence: JP)
  Receive Date: 20220221
  Receipt Date: 20220302
  Transmission Date: 20220423
  Serious: Yes (Other)
  Sender: FDA-Public Use
  Company Number: JP-CHUGAI-2022004806

PATIENT
  Age: 56 Year

DRUGS (1)
  1. ADO-TRASTUZUMAB EMTANSINE [Suspect]
     Active Substance: ADO-TRASTUZUMAB EMTANSINE
     Indication: Extramammary Paget^s disease
     Dosage: ON 28/MAY/2021, THE PATIENT RECEIVED MOST RECENT DOSE OF TRASTUZUMAB EMTANSINE.
     Route: 041
     Dates: start: 20210326

REACTIONS (2)
  - Cellulitis [Recovered/Resolved]
  - Off label use [Unknown]

NARRATIVE: CASE EVENT DATE: 20210328
